FAERS Safety Report 21580423 (Version 1)
Quarter: 2022Q4

REPORT INFORMATION
  Report Type: Other
  Country: AT (occurrence: AT)
  Receive Date: 20221110
  Receipt Date: 20221110
  Transmission Date: 20230113
  Serious: Yes (Other)
  Sender: FDA-Public Use
  Company Number: AT-CELLTRION INC.-2022AT018630

PATIENT

DRUGS (1)
  1. INFLIXIMAB [Suspect]
     Active Substance: INFLIXIMAB
     Indication: Crohn^s disease
     Dosage: UNK

REACTIONS (5)
  - Lung infiltration [Unknown]
  - Pulmonary tuberculosis [Unknown]
  - Lymph node tuberculosis [Unknown]
  - Oesophageal tuberculosis [Unknown]
  - Lymphadenopathy [Unknown]
